FAERS Safety Report 15520946 (Version 1)
Quarter: 2018Q4

REPORT INFORMATION
  Report Type: Report from Study
  Country: US (occurrence: US)
  Receive Date: 20181017
  Receipt Date: 20181017
  Transmission Date: 20190205
  Serious: No
  Sender: FDA-Public Use
  Company Number: US-AMGEN-USASL2018118622

PATIENT
  Age: 61 Year
  Sex: Male

DRUGS (5)
  1. REPATHA [Suspect]
     Active Substance: EVOLOCUMAB
     Indication: ACUTE MYOCARDIAL INFARCTION
  2. REPATHA [Suspect]
     Active Substance: EVOLOCUMAB
     Indication: ESSENTIAL HYPERTENSION
     Dosage: 420 MG, QMO
     Route: 058
     Dates: start: 2018
  3. REPATHA [Suspect]
     Active Substance: EVOLOCUMAB
     Indication: ANGINA PECTORIS
  4. REPATHA [Suspect]
     Active Substance: EVOLOCUMAB
     Indication: HYPERLIPIDAEMIA
  5. REPATHA [Suspect]
     Active Substance: EVOLOCUMAB
     Indication: ARTERIOSCLEROSIS CORONARY ARTERY

REACTIONS (2)
  - Flushing [Recovered/Resolved]
  - Feeling hot [Recovered/Resolved]

NARRATIVE: CASE EVENT DATE: 20180802
